FAERS Safety Report 7639599-0 (Version None)
Quarter: 2011Q3

REPORT INFORMATION
  Report Type: 
  Country: None (occurrence: None)
  Receive Date: 20110721
  Receipt Date: 20110708
  Transmission Date: 20111222
  Serious: Yes (Hospitalization)
  Sender: FDA-Public Use
  Company Number: IDA-00563

PATIENT
  Age: 91 Year
  Sex: Female

DRUGS (8)
  1. NITRODERM TTS (GLYVERYL TRINITRATE) [Concomitant]
  2. INDERAL [Suspect]
     Indication: CARDIAC FAILURE
     Dosage: 40 MG DAILY
     Route: 048
     Dates: start: 20100731, end: 20110626
  3. LASIX [Concomitant]
  4. ASPIRIN [Concomitant]
  5. LYRICA [Concomitant]
  6. ALDACTONE [Concomitant]
  7. HUMALOG [Concomitant]
  8. LANTUS [Concomitant]

REACTIONS (1)
  - SINUS BRADYCARDIA [None]
